FAERS Safety Report 21503446 (Version 1)
Quarter: 2022Q4

REPORT INFORMATION
  Report Type: Spontaneous
  Country: US (occurrence: US)
  Receive Date: 20221025
  Receipt Date: 20221025
  Transmission Date: 20230113
  Serious: No
  Sender: FDA-Public Use
  Company Number: US-Merz Pharmaceuticals GmbH-22-02919

PATIENT
  Age: 27 Year
  Sex: Female

DRUGS (2)
  1. XEOMIN [Suspect]
     Active Substance: INCOBOTULINUMTOXINA
     Indication: Bruxism
  2. XEOMIN [Suspect]
     Active Substance: INCOBOTULINUMTOXINA
     Indication: Facial pain

REACTIONS (6)
  - Wheezing [Unknown]
  - Sneezing [Unknown]
  - Nasal congestion [Unknown]
  - Injection site rash [Unknown]
  - Injection site pruritus [Unknown]
  - Off label use [Unknown]
